FAERS Safety Report 4353875-9 (Version None)
Quarter: 2004Q2

REPORT INFORMATION
  Report Type: 
  Country: None (occurrence: None)
  Receive Date: 20040503
  Receipt Date: 20040423
  Transmission Date: 20050107
  Serious: Yes (Other)
  Sender: FDA-Public Use
  Company Number: 2004204505AU

PATIENT
  Sex: Female

DRUGS (2)
  1. CELEBREX [Suspect]
  2. HIGH SALT SUPPLEMENT [Concomitant]

REACTIONS (2)
  - HYPONATRAEMIA [None]
  - INAPPROPRIATE ANTIDIURETIC HORMONE SECRETION [None]
